FAERS Safety Report 8341320-8 (Version None)
Quarter: 2012Q2

REPORT INFORMATION
  Report Type: 
  Country: None (occurrence: None)
  Receive Date: 20120507
  Receipt Date: 20120429
  Transmission Date: 20120825
  Serious: Yes (Other)
  Sender: FDA-Public Use
  Company Number: US-JNJFOC-20120502505

PATIENT
  Sex: Female

DRUGS (1)
  1. BENADRYL [Suspect]
     Indication: PRODUCT USED FOR UNKNOWN INDICATION
     Dosage: 1 OR 2 TABLETS, ONCE
     Route: 048
     Dates: start: 19870101

REACTIONS (3)
  - DYSPNOEA [None]
  - REACTION TO DRUG EXCIPIENTS [None]
  - ANAPHYLACTIC SHOCK [None]
